FAERS Safety Report 23851718 (Version 1)
Quarter: 2024Q2

REPORT INFORMATION
  Report Type: Other
  Country: ZA (occurrence: None)
  Receive Date: 20240514
  Receipt Date: 20240514
  Transmission Date: 20240716
  Serious: Yes (Other)
  Sender: FDA-Public Use
  Company Number: ZA-ROCHE-3558696

PATIENT
  Sex: Male

DRUGS (1)
  1. OCREVUS [Suspect]
     Active Substance: OCRELIZUMAB
     Indication: Primary progressive multiple sclerosis
     Dosage: 600 MG FOR 6 MONTHS
     Route: 041
     Dates: start: 20221018

REACTIONS (10)
  - Retention cyst [Unknown]
  - Intervertebral disc degeneration [Unknown]
  - Nerve compression [Unknown]
  - Spinal osteoarthritis [Unknown]
  - Spinal stenosis [Unknown]
  - Spinal cord compression [Unknown]
  - Spinal fusion surgery [Unknown]
  - Intervertebral disc protrusion [Unknown]
  - Ligament disorder [Unknown]
  - Vertebral foraminal stenosis [Unknown]
